FAERS Safety Report 10627557 (Version 1)
Quarter: 2014Q4

REPORT INFORMATION
  Report Type: Spontaneous
  Country: IT (occurrence: IT)
  Receive Date: 20141205
  Receipt Date: 20141205
  Transmission Date: 20150529
  Serious: Yes (Hospitalization)
  Sender: FDA-Public Use
  Company Number: IT-AUROBINDO-AUR-APL-2014-12606

PATIENT
  Age: 58 Year
  Sex: Female

DRUGS (1)
  1. AMOXICILLIN+CLAVULANIC ACID [Suspect]
     Active Substance: AMOXICILLIN\CLAVULANIC ACID
     Indication: DENTAL CARE
     Dosage: UNK
     Route: 065

REACTIONS (9)
  - Drug reaction with eosinophilia and systemic symptoms [Unknown]
  - Skin oedema [Unknown]
  - Rash erythematous [Unknown]
  - Erythema [Unknown]
  - Hepatic function abnormal [Unknown]
  - Lymphadenopathy [Unknown]
  - Rash papular [Unknown]
  - Skin lesion [Unknown]
  - Pyrexia [Unknown]
